FAERS Safety Report 14219736 (Version 1)
Quarter: 2017Q4

REPORT INFORMATION
  Report Type: Report from Study
  Country: US (occurrence: US)
  Receive Date: 20171123
  Receipt Date: 20171123
  Transmission Date: 20180321
  Serious: Yes (Hospitalization, Other)
  Sender: FDA-Public Use
  Company Number: US-UCBSA-2017046754

PATIENT

DRUGS (5)
  1. ZOPICLONE [Concomitant]
     Active Substance: ZOPICLONE
     Indication: SLEEP DISORDER
  2. LEVETIRACETAM. [Suspect]
     Active Substance: LEVETIRACETAM
     Dosage: DRUG WAS UPPED TO A WHOLE TABLET, 250MG EACH
  3. LEVETIRACETAM. [Suspect]
     Active Substance: LEVETIRACETAM
     Indication: SEIZURE
     Dosage: HALF A TABLET
  4. LEVETIRACETAM. [Suspect]
     Active Substance: LEVETIRACETAM
     Dosage: DOSE TAPERING
  5. MORPHINE [Suspect]
     Active Substance: MORPHINE
     Indication: PRODUCT USED FOR UNKNOWN INDICATION
     Dosage: UNK

REACTIONS (17)
  - Major depression [Unknown]
  - Tonic convulsion [Unknown]
  - Vomiting [Unknown]
  - Wrong technique in product usage process [Unknown]
  - Stress [Unknown]
  - Agitation [Unknown]
  - Surgery [Unknown]
  - Emotional poverty [Unknown]
  - Visual impairment [Unknown]
  - Hypomania [Recovered/Resolved]
  - Simple partial seizures [Unknown]
  - Pruritus [Unknown]
  - Apathy [Unknown]
  - Fatigue [Unknown]
  - Insomnia [Not Recovered/Not Resolved]
  - Focal dyscognitive seizures [Unknown]
  - Change in seizure presentation [Unknown]
